FAERS Safety Report 20745266 (Version 9)
Quarter: 2022Q4

REPORT INFORMATION
  Report Type: Spontaneous
  Country: GR (occurrence: GR)
  Receive Date: 20220425
  Receipt Date: 20221021
  Transmission Date: 20230113
  Serious: Yes (Hospitalization, Other)
  Sender: FDA-Public Use
  Company Number: GR-NOVARTISPH-NVSC2022GR092981

PATIENT
  Age: 10 Year
  Sex: Female
  Weight: 31.6 kg

DRUGS (8)
  1. BUDESONIDE [Suspect]
     Active Substance: BUDESONIDE
     Indication: Asthma
     Dosage: 200 UG, QD (SPRAY)
     Route: 045
  2. BECLOMETHASONE DIPROPIONATE [Suspect]
     Active Substance: BECLOMETHASONE DIPROPIONATE
     Indication: Asthma
     Dosage: 400 UG, QD
     Route: 055
  3. BECLOMETHASONE DIPROPIONATE [Suspect]
     Active Substance: BECLOMETHASONE DIPROPIONATE
     Dosage: 200 UG, QD
     Route: 055
  4. FORMOTEROL [Suspect]
     Active Substance: FORMOTEROL
     Indication: Asthma
     Dosage: 12 UG, QD
     Route: 055
  5. FORMOTEROL [Suspect]
     Active Substance: FORMOTEROL
     Dosage: 24 UG, QD
     Route: 055
  6. FORMOTEROL [Suspect]
     Active Substance: FORMOTEROL
     Dosage: 400 UG DAILY FOR 2 YEARS AND THAN 200 UG FOR ONE YEAR
  7. DEXAMETHASONE SODIUM PHOSPHATE [Suspect]
     Active Substance: DEXAMETHASONE SODIUM PHOSPHATE
     Indication: Asthma
     Dosage: 10 DAYS REGIMENS DURING FLARE-UPS, 10 DAYS REGIMENS DURING EXACERBATION
     Route: 048
  8. DEXAMETHASONE SODIUM PHOSPHATE [Suspect]
     Active Substance: DEXAMETHASONE SODIUM PHOSPHATE
     Indication: Asthmatic crisis

REACTIONS (8)
  - Growth retardation [Recovered/Resolved]
  - Cortisol decreased [Recovered/Resolved]
  - Growth failure [Recovered/Resolved]
  - Hyperadrenocorticism [Recovered/Resolved]
  - Growth hormone deficiency [Recovered/Resolved]
  - Bone density decreased [Unknown]
  - Muscle atrophy [Unknown]
  - Hypothalamic pituitary adrenal axis suppression [Recovered/Resolved]
